FAERS Safety Report 14879740 (Version 1)
Quarter: 2018Q2

REPORT INFORMATION
  Report Type: Spontaneous
  Country: FR (occurrence: FR)
  Receive Date: 20180511
  Receipt Date: 20180511
  Transmission Date: 20180711
  Serious: Yes (Life-Threatening, Other)
  Sender: FDA-Public Use
  Company Number: US-ASTRAZENECA-2013SE82986

PATIENT
  Age: 58 Year
  Sex: Female

DRUGS (4)
  1. CLONAZEPAM. [Suspect]
     Active Substance: CLONAZEPAM
     Dosage: OVERDOSE
     Route: 065
  2. ZOPICLONE [Suspect]
     Active Substance: ZOPICLONE
     Dosage: OVERDOSE
     Route: 065
  3. EXENATIDE. [Suspect]
     Active Substance: EXENATIDE
     Dosage: OVERDOSE (600 UG)
     Route: 058
  4. LEVOMEPROMAZINE [Suspect]
     Active Substance: LEVOMEPROMAZINE
     Dosage: OVERDOSE (1.2 G)
     Route: 065

REACTIONS (3)
  - Coma [Recovering/Resolving]
  - Overdose [Unknown]
  - Hypoglycaemia [Recovered/Resolved]
